FAERS Safety Report 25727850 (Version 1)
Quarter: 2025Q3

REPORT INFORMATION
  Report Type: Spontaneous
  Country: US (occurrence: None)
  Receive Date: 20250826
  Receipt Date: 20250826
  Transmission Date: 20251020
  Serious: Yes (Other)
  Sender: FDA-CTU
  Company Number: None

PATIENT
  Age: 33 Year
  Sex: Female

DRUGS (11)
  1. TREMFYA [Suspect]
     Active Substance: GUSELKUMAB
     Indication: Psoriatic arthropathy
     Route: 058
     Dates: start: 20241217, end: 20250603
  2. COLESTIPOL [Concomitant]
     Active Substance: COLESTIPOL
  3. TYLENOL [Concomitant]
     Active Substance: ACETAMINOPHEN
  4. ISIBLOOM [Concomitant]
     Active Substance: DESOGESTREL\ETHINYL ESTRADIOL
  5. AZITHROMYCIN [Concomitant]
     Active Substance: AZITHROMYCIN
  6. CHLORHEXIDINE 0.12% ORAL RINS 473ML [Concomitant]
  7. IBUPROFEN [Concomitant]
     Active Substance: IBUPROFEN
  8. PREDNISONE [Concomitant]
     Active Substance: PREDNISONE
  9. LEFLUNOMIDE [Concomitant]
     Active Substance: LEFLUNOMIDE
  10. METHYLPREDNISOLONE [Concomitant]
     Active Substance: METHYLPREDNISOLONE
  11. TRIAMCINOLONE 0.1% CREAM 30GM [Concomitant]

REACTIONS (1)
  - Hepatic cancer [None]

NARRATIVE: CASE EVENT DATE: 20250701
